FAERS Safety Report 18625176 (Version 2)
Quarter: 2020Q4

REPORT INFORMATION
  Report Type: Report from Study
  Country: US (occurrence: US)
  Receive Date: 20201217
  Receipt Date: 20201218
  Transmission Date: 20210114
  Serious: Yes (Other)
  Sender: FDA-Public Use
  Company Number: US-BIOVITRUM-2020US7532

PATIENT
  Sex: Female

DRUGS (1)
  1. KINERET [Suspect]
     Active Substance: ANAKINRA
     Indication: RHEUMATOID ARTHRITIS
     Dosage: 100MG/0.67ML
     Route: 058
     Dates: start: 20200826, end: 20201211

REACTIONS (9)
  - Vomiting [Unknown]
  - Gait disturbance [Unknown]
  - Drug ineffective [Unknown]
  - Adverse drug reaction [Unknown]
  - Suspected COVID-19 [Unknown]
  - Peripheral swelling [Unknown]
  - Inflammation [Unknown]
  - Pyrexia [Unknown]
  - Back pain [Unknown]
